FAERS Safety Report 9845814 (Version 4)
Quarter: 2014Q1

REPORT INFORMATION
  Report Type: Spontaneous
  Country: US (occurrence: US)
  Receive Date: 20140127
  Receipt Date: 20140331
  Transmission Date: 20141002
  Serious: Yes (Other)
  Sender: FDA-Public Use
  Company Number: US-PFIZER INC-2014024554

PATIENT
  Age: 59 Year
  Sex: Male
  Weight: 78.46 kg

DRUGS (3)
  1. PRISTIQ [Suspect]
     Dosage: UNK
  2. PREVACID [Concomitant]
     Dosage: 30 MG, DAILY
     Route: 048
  3. JEVITY [Concomitant]
     Dosage: 1.2 CAL
     Route: 048

REACTIONS (2)
  - Foreign body [Recovered/Resolved]
  - Dysphagia [Recovered/Resolved]
